FAERS Safety Report 23907153 (Version 1)
Quarter: 2024Q2

REPORT INFORMATION
  Report Type: Spontaneous
  Country: US (occurrence: US)
  Receive Date: 20240528
  Receipt Date: 20240528
  Transmission Date: 20240716
  Serious: Yes (Hospitalization, Other)
  Sender: FDA-Public Use
  Company Number: US-APOTEX-2024AP006204

PATIENT
  Age: 30 Year
  Sex: Male

DRUGS (1)
  1. ACETAMINOPHEN [Suspect]
     Active Substance: ACETAMINOPHEN
     Indication: Product used for unknown indication
     Dosage: UNK
     Route: 065

REACTIONS (6)
  - Anuria [Unknown]
  - Hepatic encephalopathy [Unknown]
  - Metabolic acidosis [Unknown]
  - Overdose [Unknown]
  - Hyperammonaemia [Recovering/Resolving]
  - Acute hepatic failure [Unknown]
